FAERS Safety Report 20166461 (Version 2)
Quarter: 2021Q4

REPORT INFORMATION
  Report Type: Spontaneous
  Country: DE (occurrence: DE)
  Receive Date: 20211209
  Receipt Date: 20211223
  Transmission Date: 20220303
  Serious: Yes (Other)
  Sender: FDA-Public Use
  Company Number: DE-JNJFOC-20211052262

PATIENT
  Age: 53 Year
  Sex: Female

DRUGS (13)
  1. PREGABALIN [Suspect]
     Active Substance: PREGABALIN
     Indication: Neuralgia
     Dosage: 150 MG, 1/DAY
     Route: 048
     Dates: start: 20210729
  2. PREGABALIN [Suspect]
     Active Substance: PREGABALIN
     Dosage: 25 MG, 1/DAY
     Route: 048
     Dates: start: 20210628, end: 20210630
  3. TRAMADOL [Suspect]
     Active Substance: TRAMADOL
     Indication: Neuralgia
     Dosage: 200 MG
     Route: 048
     Dates: start: 20210813
  4. TRAMADOL [Suspect]
     Active Substance: TRAMADOL
     Dosage: 50 MG, ONCE A DAY
     Route: 048
     Dates: start: 20210805
  5. TRAMADOL [Suspect]
     Active Substance: TRAMADOL
     Dosage: 100 MG, 1/DAY
     Dates: start: 20210806, end: 20210812
  6. METAMIZOLE [Suspect]
     Active Substance: METAMIZOLE
     Dosage: 5000 MG
     Dates: start: 20210714
  7. METAMIZOLE [Suspect]
     Active Substance: METAMIZOLE
     Dosage: 1500 MG, ONCE A DAY
     Dates: start: 20210628
  8. METAMIZOLE [Suspect]
     Active Substance: METAMIZOLE
     Dosage: 2000 MG, ONCE A DAY
     Route: 048
     Dates: start: 20210629, end: 20210713
  9. RISPERDAL [Suspect]
     Active Substance: RISPERIDONE
     Indication: Hallucination
     Dosage: UNK
  10. RISPERDAL [Suspect]
     Active Substance: RISPERIDONE
     Indication: Psychotic disorder
     Dosage: 3 MG, ONCE A DAY
     Route: 048
     Dates: start: 20210628
  11. RISPERDAL [Suspect]
     Active Substance: RISPERIDONE
     Indication: Amnestic disorder
     Dosage: 2 MG, 1/DAY
     Route: 048
     Dates: start: 20210601, end: 20210627
  12. DEXAMETHASONE [Suspect]
     Active Substance: DEXAMETHASONE
     Indication: Neuralgia
     Dosage: 2 MG, ONCE A DAY
     Dates: start: 20210601
  13. METOCLOPRAMIDE [Suspect]
     Active Substance: METOCLOPRAMIDE
     Indication: Neuralgia
     Dosage: 30 MG, ONCE A DAY
     Route: 048
     Dates: start: 20210806, end: 20210829

REACTIONS (1)
  - Hepatic enzyme increased [Recovering/Resolving]

NARRATIVE: CASE EVENT DATE: 20210810
